FAERS Safety Report 18532704 (Version 1)
Quarter: 2020Q4

REPORT INFORMATION
  Report Type: Spontaneous
  Country: US (occurrence: US)
  Receive Date: 20201123
  Receipt Date: 20201123
  Transmission Date: 20210114
  Serious: No
  Sender: FDA-Public Use
  Company Number: US-BRISTOL-MYERS SQUIBB COMPANY-BMS-2020-096739

PATIENT
  Age: 63 Year
  Sex: Male

DRUGS (1)
  1. ELIQUIS [Suspect]
     Active Substance: APIXABAN
     Indication: COVID-19
     Dosage: 2.5 MILLIGRAM
     Route: 048

REACTIONS (3)
  - Fatigue [Unknown]
  - Chest pain [Unknown]
  - Intentional product use issue [Unknown]
